FAERS Safety Report 11258684 (Version 1)
Quarter: 2015Q2

REPORT INFORMATION
  Report Type: Spontaneous
  Country: US (occurrence: None)
  Receive Date: 20150617
  Receipt Date: 20150617
  Transmission Date: 20150821
  Serious: No
  Sender: FDA-Public Use
  Company Number: 2014TASUS000600

PATIENT
  Age: 53 Year
  Sex: Male

DRUGS (9)
  1. NASONEX [Concomitant]
     Active Substance: MOMETASONE FUROATE
  2. OXYCODONE HCL (OXYCODONE HYDROCHLORIDE) [Concomitant]
     Active Substance: OXYCODONE HYDROCHLORIDE
  3. COLACE [Concomitant]
     Active Substance: DOCUSATE SODIUM
  4. MOBIC [Concomitant]
     Active Substance: MELOXICAM
  5. TEMOVATE (CLOBETASOL PROPIONATE) [Concomitant]
  6. FEOSOL (FERROUS SULFATE) [Concomitant]
  7. ULTRAM (TRAMADOL HYDROCHLORIDE) [Concomitant]
     Active Substance: TRAMADOL HYDROCHLORIDE
  8. XANAX [Concomitant]
     Active Substance: ALPRAZOLAM
  9. HETLIOZ [Suspect]
     Active Substance: TASIMELTEON
     Indication: CIRCADIAN RHYTHM SLEEP DISORDER
     Dates: start: 20141111

REACTIONS (3)
  - Urine odour abnormal [None]
  - White blood cell count increased [None]
  - Drug ineffective [None]

NARRATIVE: CASE EVENT DATE: 20141120
